FAERS Safety Report 8611538-5 (Version None)
Quarter: 2012Q3

REPORT INFORMATION
  Report Type: 
  Country: None (occurrence: None)
  Receive Date: 20120809
  Receipt Date: 20120725
  Transmission Date: 20120928
  Serious: Yes (Death, Other)
  Sender: FDA-Public Use
  Company Number: 2012MA009149

PATIENT
  Age: 38 Year
  Sex: Male

DRUGS (6)
  1. TRAMADOL HCL [Suspect]
  2. COCAINE [Suspect]
  3. ACETAMINOPHEN AND HYDROCODONE BITARTRATE [Suspect]
  4. ETHANOL [Suspect]
  5. DIAZEPAM [Suspect]
  6. KADIAN [Suspect]

REACTIONS (5)
  - CARDIAC ARREST [None]
  - COMPLETED SUICIDE [None]
  - UNRESPONSIVE TO STIMULI [None]
  - MYDRIASIS [None]
  - MULTIPLE DRUG OVERDOSE [None]
